FAERS Safety Report 9387436 (Version 1)
Quarter: 2013Q3

REPORT INFORMATION
  Report Type: Spontaneous
  Country: US (occurrence: None)
  Receive Date: 20130702
  Receipt Date: 20130702
  Transmission Date: 20140515
  Serious: Yes (Hospitalization)
  Sender: FDA-Public Use
  Company Number: DEXT20130001

PATIENT
  Age: 44 Year
  Sex: Female

DRUGS (2)
  1. DEXTROAMPHETAMINE SULFATE [Suspect]
     Indication: ATTENTION DEFICIT/HYPERACTIVITY DISORDER
     Dosage: 1 DOSE, 1 HOUR BEFORE EXERCISE.
  2. ALCOHOL (ETHANOL) [Suspect]
     Indication: ALCOHOL USE
     Dosage: 3 DRINKS, 4 HOURS AFTER DEXTROAMPHETAMINE DOSE.

REACTIONS (7)
  - Blood potassium decreased [None]
  - Electrocardiogram QT prolonged [None]
  - Rhabdomyolysis [None]
  - Metabolic acidosis [None]
  - Dehydration [None]
  - Inadequate analgesia [None]
  - Drug effect decreased [None]
